FAERS Safety Report 6722192-1 (Version None)
Quarter: 2010Q2

REPORT INFORMATION
  Report Type: 
  Country: None (occurrence: None)
  Receive Date: 20100512
  Receipt Date: 20100506
  Transmission Date: 20101027
  Serious: Yes (Disabling)
  Sender: FDA-Public Use
  Company Number: US-MERCK-1005USA00666

PATIENT
  Age: 47 Year
  Sex: Female

DRUGS (2)
  1. SINGULAIR [Suspect]
     Indication: BRONCHOSPASM
     Route: 048
     Dates: start: 20091119, end: 20100421
  2. PAXIL CR [Concomitant]
     Route: 065

REACTIONS (3)
  - DEPRESSION [None]
  - LETHARGY [None]
  - SUICIDAL IDEATION [None]
